FAERS Safety Report 7137897-0 (Version None)
Quarter: 2010Q4

REPORT INFORMATION
  Report Type: 
  Country: None (occurrence: None)
  Receive Date: 20101103
  Receipt Date: 20100903
  Transmission Date: 20110411
  Serious: Yes (Other)
  Sender: FDA-Public Use
  Company Number: 2010S1001356

PATIENT
  Age: 30 Year
  Sex: Female
  Weight: 100 kg

DRUGS (7)
  1. CUBICIN [Suspect]
     Indication: ENTEROCOCCAL BACTERAEMIA
     Dosage: 7.5 MG/KG;Q24H;IV
     Route: 042
     Dates: start: 20100823, end: 20100829
  2. ROCURONIUM BROMIDE [Concomitant]
  3. MIDAZOLAM [Concomitant]
  4. COLISTIN MESILATE [Concomitant]
  5. SODIUM [Concomitant]
  6. METHYLPREDNISOLONE [Concomitant]
  7. CIPROFLOXACIN [Concomitant]

REACTIONS (1)
  - RHABDOMYOLYSIS [None]
